FAERS Safety Report 16004577 (Version 1)
Quarter: 2019Q1

REPORT INFORMATION
  Report Type: Spontaneous
  Country: CN (occurrence: CN)
  Receive Date: 20190226
  Receipt Date: 20190226
  Transmission Date: 20190418
  Serious: Yes (Hospitalization, Disabling)
  Sender: FDA-Public Use
  Company Number: CN-TAKEDA-2019TUS008442

PATIENT
  Age: 69 Year
  Sex: Female
  Weight: 70 kg

DRUGS (8)
  1. SERTRALINE HYDROCHLORIDE. [Suspect]
     Active Substance: SERTRALINE HYDROCHLORIDE
     Indication: SCHIZOPHRENIA
     Dosage: 100 MILLIGRAM, QD
     Route: 048
     Dates: start: 20180927, end: 20181107
  2. ZYPREXA [Suspect]
     Active Substance: OLANZAPINE
     Dosage: 2.5 MILLIGRAM, QD
     Route: 048
     Dates: start: 20181008, end: 20181012
  3. BORTEZOMIB. [Suspect]
     Active Substance: BORTEZOMIB
     Indication: PLASMA CELL MYELOMA
     Dosage: UNK
     Route: 065
     Dates: start: 20181002
  4. INVEGA [Suspect]
     Active Substance: PALIPERIDONE
     Dosage: 9 MILLIGRAM, QD
     Route: 048
     Dates: start: 20181012, end: 20181022
  5. ZYPREXA [Suspect]
     Active Substance: OLANZAPINE
     Dosage: 5 MILLIGRAM, QD
     Route: 048
     Dates: start: 20181022
  6. INVEGA [Suspect]
     Active Substance: PALIPERIDONE
     Indication: SCHIZOPHRENIA
     Dosage: 3 MILLIGRAM, QD
     Route: 048
     Dates: start: 20180927, end: 20181003
  7. INVEGA [Suspect]
     Active Substance: PALIPERIDONE
     Dosage: 6 MILLIGRAM, QD
     Route: 048
     Dates: start: 20181004, end: 20181012
  8. ZYPREXA [Suspect]
     Active Substance: OLANZAPINE
     Indication: SCHIZOPHRENIA
     Dosage: 5 MILLIGRAM, QD
     Route: 048
     Dates: start: 20180927, end: 20181007

REACTIONS (3)
  - Neutrophil count decreased [Recovering/Resolving]
  - White blood cell count decreased [Recovering/Resolving]
  - Muscular weakness [Recovered/Resolved]

NARRATIVE: CASE EVENT DATE: 201810
